FAERS Safety Report 4750603-X (Version None)
Quarter: 2005Q3

REPORT INFORMATION
  Report Type: 
  Country: None (occurrence: None)
  Receive Date: 20050823
  Receipt Date: 20050801
  Transmission Date: 20060218
  Serious: Yes (Death)
  Sender: FDA-Public Use
  Company Number: JP-ROCHE-412454

PATIENT
  Age: 68 Year
  Sex: Female

DRUGS (1)
  1. PEGASYS [Suspect]
     Dosage: TEN DOSES BEFORE ONSET.
     Route: 058
     Dates: start: 20050527, end: 20050727

REACTIONS (6)
  - CEREBRAL HAEMATOMA [None]
  - CEREBRAL HAEMORRHAGE [None]
  - FALL [None]
  - HYPERTENSION [None]
  - LOSS OF CONSCIOUSNESS [None]
  - PLATELET COUNT DECREASED [None]
